FAERS Safety Report 9779010 (Version 2)
Quarter: 2014Q1

REPORT INFORMATION
  Report Type: Spontaneous
  Country: IT (occurrence: IT)
  Receive Date: 20131223
  Receipt Date: 20140220
  Transmission Date: 20141002
  Serious: Yes (Other)
  Sender: FDA-Public Use
  Company Number: IT-BRISTOL-MYERS SQUIBB COMPANY-19913979

PATIENT
  Age: 73 Year
  Sex: Female

DRUGS (1)
  1. COUMADIN TABS 5 MG [Suspect]
     Indication: THROMBOSIS
     Dosage: 1 DF-1 UNIT
     Route: 048
     Dates: start: 20130101, end: 20130905

REACTIONS (1)
  - Anaemia [Unknown]
